FAERS Safety Report 9353382 (Version 1)
Quarter: 2013Q2

REPORT INFORMATION
  Report Type: Spontaneous
  Country: BR (occurrence: BR)
  Receive Date: 20130618
  Receipt Date: 20130618
  Transmission Date: 20140414
  Serious: Yes (Other)
  Sender: FDA-Public Use
  Company Number: BR-PFIZER INC-2013169409

PATIENT
  Age: 71 Year
  Sex: Male
  Weight: 80 kg

DRUGS (7)
  1. LYRICA [Suspect]
     Indication: DIABETIC NEUROPATHY
     Dosage: 75 MG, 1X/DAY
     Route: 048
  2. LYRICA [Suspect]
     Dosage: 75 MG, 2X/DAY
     Route: 048
  3. LYRICA [Suspect]
     Dosage: 150 MG, 2X/DAY
  4. BROMAZEPAM [Concomitant]
     Indication: SLEEP DISORDER
  5. METFORMIN [Concomitant]
     Indication: DIABETES MELLITUS
  6. DIAMICRON [Concomitant]
     Indication: DIABETES MELLITUS
  7. ENALAPRIL MALEATE [Concomitant]
     Indication: BLOOD PRESSURE

REACTIONS (4)
  - Diabetes mellitus [Unknown]
  - Tinnitus [Unknown]
  - Feeling hot [Unknown]
  - Drug ineffective [Unknown]
